FAERS Safety Report 6786969-9 (Version None)
Quarter: 2010Q2

REPORT INFORMATION
  Report Type: 
  Country: None (occurrence: None)
  Receive Date: 20100621
  Receipt Date: 20100603
  Transmission Date: 20101027
  Serious: Yes (Life-Threatening)
  Sender: FDA-Public Use
  Company Number: FKO201000217

PATIENT
  Age: 36 Year
  Sex: Female

DRUGS (1)
  1. PACLITAXEL [Suspect]
     Indication: LUNG ADENOCARCINOMA
     Dosage: (175 MG/M2, 2X100MG+30 MG), INTRAVENOUS (NOT OTHERWISE SPECIFIED)
     Dates: start: 20100531

REACTIONS (4)
  - CYANOSIS [None]
  - DYSPNOEA [None]
  - EYE ROLLING [None]
  - LOSS OF CONSCIOUSNESS [None]
